FAERS Safety Report 9277197 (Version 1)
Quarter: 2013Q2

REPORT INFORMATION
  Report Type: Spontaneous
  Country: US (occurrence: US)
  Receive Date: 20130508
  Receipt Date: 20130508
  Transmission Date: 20140414
  Serious: Yes (Other)
  Sender: FDA-Public Use
  Company Number: US-ROCHE-1214142

PATIENT
  Age: 64 Year
  Sex: Female
  Weight: 81.81 kg

DRUGS (1)
  1. KADCYLA [Suspect]
     Indication: BREAST CANCER METASTATIC
     Route: 042
     Dates: start: 20130305, end: 20130416

REACTIONS (3)
  - Disease progression [Not Recovered/Not Resolved]
  - Myalgia [Not Recovered/Not Resolved]
  - Hip fracture [Recovering/Resolving]
